FAERS Safety Report 20872781 (Version 1)
Quarter: 2022Q2

REPORT INFORMATION
  Report Type: Spontaneous
  Country: US (occurrence: US)
  Receive Date: 20220525
  Receipt Date: 20220525
  Transmission Date: 20220721
  Serious: No
  Sender: FDA-Public Use
  Company Number: US-PFIZER INC-202200732046

PATIENT
  Age: 69 Year
  Sex: Female

DRUGS (2)
  1. PAXLOVID [Suspect]
     Active Substance: NIRMATRELVIR\RITONAVIR
     Indication: COVID-19 treatment
     Dosage: 5 DF
     Dates: start: 202205
  2. FLECAINIDE [Suspect]
     Active Substance: FLECAINIDE
     Dosage: UNK

REACTIONS (1)
  - Contraindicated product administered [Unknown]
